FAERS Safety Report 9614925 (Version 1)
Quarter: 2013Q4

REPORT INFORMATION
  Report Type: Spontaneous
  Country: US (occurrence: US)
  Receive Date: 20131011
  Receipt Date: 20131011
  Transmission Date: 20140711
  Serious: No
  Sender: FDA-Public Use
  Company Number: US-PFIZER INC-2013288217

PATIENT
  Sex: Male

DRUGS (2)
  1. ADVIL PM [Suspect]
     Dosage: UNK
     Route: 048
  2. ADVIL PM [Suspect]
     Dosage: 4 CAPLETS AT ONCE
     Route: 048

REACTIONS (2)
  - Overdose [Unknown]
  - Somnolence [Unknown]
